FAERS Safety Report 7956116-6 (Version None)
Quarter: 2011Q4

REPORT INFORMATION
  Report Type: 
  Country: None (occurrence: None)
  Receive Date: 20111205
  Receipt Date: 20111121
  Transmission Date: 20120403
  Serious: Yes (Other)
  Sender: FDA-Public Use
  Company Number: CH-ELI_LILLY_AND_COMPANY-CH201111006869

PATIENT
  Sex: Female

DRUGS (3)
  1. LYRICA [Concomitant]
  2. SEROQUEL [Concomitant]
     Dosage: UNK
  3. CYMBALTA [Suspect]
     Dosage: UNK, UNKNOWN

REACTIONS (1)
  - HEPATIC ENZYME INCREASED [None]
